FAERS Safety Report 10371020 (Version 1)
Quarter: 2014Q1

REPORT INFORMATION
  Report Type: Spontaneous
  Country: US (occurrence: None)
  Receive Date: 20140306
  Receipt Date: 20140306
  Transmission Date: 20141002
  Serious: Yes (Other)
  Sender: FDA-Public Use
  Company Number: 163-21880-13010136

PATIENT
  Age: 58 Year
  Sex: Male
  Weight: 95 kg

DRUGS (5)
  1. REVLIMID (LENALIDOMIDE) (5 MILLIGRAM, CAPSULES) [Suspect]
     Indication: CHRONIC LYMPHOCYTIC LEUKAEMIA
     Route: 048
     Dates: start: 20121011, end: 20121016
  2. ASA (ACETYLSALICYLIC ACID) [Concomitant]
  3. RANITIDINE [Concomitant]
  4. BACTRIM [Concomitant]
  5. VALTREX (VALACICLOVIR HYDROCHLORIDE) [Concomitant]

REACTIONS (1)
  - Tumour flare [None]
